FAERS Safety Report 9646419 (Version 1)
Quarter: 2013Q4

REPORT INFORMATION
  Report Type: Spontaneous
  Country: GB (occurrence: GB)
  Receive Date: 20131025
  Receipt Date: 20131025
  Transmission Date: 20140711
  Serious: Yes (Hospitalization)
  Sender: FDA-Public Use
  Company Number: PHHY2013GB117686

PATIENT
  Age: 82 Year
  Sex: Male
  Weight: 67 kg

DRUGS (17)
  1. RAMIPRIL [Suspect]
     Indication: HYPERTENSION
     Dosage: 5 MG, QD
     Route: 048
     Dates: end: 20130927
  2. PEPTAC [Concomitant]
     Indication: DYSPEPSIA
     Dosage: 10 ML, QID (AFTER MEALS AND NIGHT)
     Route: 048
  3. AMOXICILLIN [Concomitant]
     Indication: URINARY TRACT INFECTION
     Dosage: 500 MG, TID (INR CLINIC AWARE)
     Route: 048
     Dates: end: 20130808
  4. CLENIL MODULITE [Concomitant]
     Dosage: 400 UG, BID
     Route: 055
  5. BISOPROLOL [Concomitant]
     Dosage: 7.5 MG, QD (EVERY MORNING)
     Route: 048
  6. BUMETANIDE [Concomitant]
     Dosage: 1 MG, BID (MORNING AND EVENING)
     Route: 048
  7. CODEINE PHOSPHATE [Concomitant]
     Indication: PAIN
     Dosage: 30 MG, QID
     Route: 048
  8. DONEPEZIL [Concomitant]
     Dosage: 10 MG, ONE AT NIGHT
     Route: 048
  9. FERROUS FUMARATE [Concomitant]
     Dosage: 140 MG, TID (MORNING, LUNCHTIME AND EVENING)
     Route: 048
  10. FLUOXETINE [Concomitant]
     Dosage: 20 MG, QD (EVERY MORNING)
     Route: 048
  11. LANSOPRAZOLE [Concomitant]
     Dosage: 30 MG, QD (EVERY MORNING)
     Route: 048
  12. PARACETAMOL [Concomitant]
     Indication: PAIN
     Dosage: 1 G, QID
     Route: 048
  13. RAMIPRIL [Concomitant]
     Dosage: 5 MG, QD (EVERY MORNING)
     Route: 048
  14. SALBUTAMOL [Concomitant]
     Indication: WHEEZING
     Dosage: 200 UG, QID
     Route: 055
  15. SIMVASTATIN [Concomitant]
     Dosage: 40 MG, QD (AT NIGHT)
     Route: 048
  16. SPIRONOLACTONE [Concomitant]
     Dosage: 25 MG, QD (EVERY MORNING)
     Route: 048
  17. WARFARIN [Concomitant]
     Indication: ATRIAL FIBRILLATION
     Route: 048

REACTIONS (2)
  - Dehydration [Recovered/Resolved]
  - Renal failure acute [Recovered/Resolved]
